FAERS Safety Report 9399832 (Version 2)
Quarter: 2013Q3

REPORT INFORMATION
  Report Type: Report from Study
  Country: BR (occurrence: BR)
  Receive Date: 20130715
  Receipt Date: 20130725
  Transmission Date: 20140515
  Serious: Yes (Hospitalization)
  Sender: FDA-Public Use
  Company Number: PHHY2013BR074330

PATIENT
  Sex: Female

DRUGS (1)
  1. FORASEQ [Suspect]
     Indication: ASTHMA
     Dosage: 1 DF, TID (1 DF 2 OR 3 TIMES A DAY)

REACTIONS (8)
  - Gait disturbance [Unknown]
  - Speech disorder [Unknown]
  - Chest pain [Unknown]
  - Fatigue [Unknown]
  - Cough [Unknown]
  - Sputum purulent [Unknown]
  - Dyspnoea [Unknown]
  - Feeling abnormal [Unknown]
